FAERS Safety Report 17389140 (Version 1)
Quarter: 2020Q1

REPORT INFORMATION
  Report Type: Spontaneous
  Country: US (occurrence: US)
  Receive Date: 20200206
  Receipt Date: 20200206
  Transmission Date: 20200409
  Serious: No
  Sender: FDA-Public Use
  Company Number: US-UNITED THERAPEUTICS-UNT-2020-001907

PATIENT
  Sex: Female
  Weight: 87.53 kg

DRUGS (1)
  1. REMODULIN [Suspect]
     Active Substance: TREPROSTINIL
     Indication: PULMONARY ARTERIAL HYPERTENSION
     Dosage: 0.109 ?G/KG, CONTINUING
     Route: 058
     Dates: start: 20080806

REACTIONS (7)
  - Infusion site discharge [Unknown]
  - Infusion site warmth [Unknown]
  - Infusion site swelling [Unknown]
  - Purulent discharge [Unknown]
  - Nausea [Unknown]
  - Infusion site induration [Unknown]
  - Infusion site erythema [Unknown]
